FAERS Safety Report 12854537 (Version 1)
Quarter: 2016Q4

REPORT INFORMATION
  Report Type: Spontaneous
  Country: US (occurrence: US)
  Receive Date: 20161017
  Receipt Date: 20161017
  Transmission Date: 20170207
  Serious: No
  Sender: FDA-Public Use
  Company Number: US-ASTRAZENECA-2016SF03318

PATIENT
  Sex: Female

DRUGS (1)
  1. SYMBICORT [Suspect]
     Active Substance: BUDESONIDE\FORMOTEROL FUMARATE DIHYDRATE
     Dosage: 80/4.5 MCG, FREQUENCY UNKNOWN UNKNOWN
     Route: 055

REACTIONS (3)
  - Product packaging quantity issue [Unknown]
  - Headache [Unknown]
  - Intentional product misuse [Unknown]
